FAERS Safety Report 4974389-9 (Version None)
Quarter: 2006Q2

REPORT INFORMATION
  Report Type: 
  Country: None (occurrence: None)
  Receive Date: 20060417
  Receipt Date: 20060406
  Transmission Date: 20061013
  Serious: Yes (Hospitalization)
  Sender: FDA-Public Use
  Company Number: GB-BRISTOL-MYERS SQUIBB COMPANY-13338512

PATIENT
  Age: 67 Year
  Sex: Male

DRUGS (2)
  1. CDDP [Suspect]
     Indication: GASTRIC CANCER
     Route: 041
     Dates: start: 20060315, end: 20060315
  2. FLUOROURACIL [Suspect]
     Indication: GASTRIC CANCER
     Route: 041
     Dates: start: 20060315, end: 20060319

REACTIONS (3)
  - ANAEMIA [None]
  - CONSTIPATION [None]
  - DEHYDRATION [None]
